FAERS Safety Report 8048333-4 (Version None)
Quarter: 2012Q1

REPORT INFORMATION
  Report Type: 
  Country: None (occurrence: None)
  Receive Date: 20120117
  Receipt Date: 20120113
  Transmission Date: 20120608
  Serious: No
  Sender: FDA-Public Use
  Company Number: US-PFIZER INC-2011226767

PATIENT
  Sex: Female
  Weight: 54.422 kg

DRUGS (3)
  1. PROCARDIA XL [Suspect]
     Indication: BLOOD PRESSURE ABNORMAL
     Dosage: UNK
     Route: 048
  2. ALTACE [Concomitant]
     Indication: BLOOD PRESSURE ABNORMAL
     Dosage: 5 MG, DAILY
     Route: 048
  3. NIFEDIPINE [Suspect]
     Indication: BLOOD PRESSURE ABNORMAL
     Dosage: 30 MG, DAILY
     Route: 048
     Dates: start: 20110921

REACTIONS (3)
  - HEARING IMPAIRED [None]
  - HYPERTENSION [None]
  - BLOOD PRESSURE INCREASED [None]
